FAERS Safety Report 6568919-3 (Version None)
Quarter: 2010Q1

REPORT INFORMATION
  Report Type: 
  Country: None (occurrence: None)
  Receive Date: 20100203
  Receipt Date: 20100128
  Transmission Date: 20100710
  Serious: Yes (Other)
  Sender: FDA-Public Use
  Company Number: US-PFIZER INC-2009255543

PATIENT
  Sex: Male
  Weight: 77.1 kg

DRUGS (12)
  1. CHANTIX [Suspect]
     Indication: SMOKING CESSATION THERAPY
     Dosage: 1 MG, 2X/DAY
     Route: 048
     Dates: start: 20090401, end: 20090701
  2. CHANTIX [Suspect]
     Dosage: UNK
     Dates: start: 20090812
  3. CHANTIX [Suspect]
     Dosage: UNK
  4. LISINOPRIL [Concomitant]
     Indication: BLOOD PRESSURE ABNORMAL
     Dosage: 40 MG, 2X/DAY
  5. LISINOPRIL [Concomitant]
     Indication: HYPERTENSION
  6. SUSTIVA [Concomitant]
     Indication: HIV INFECTION
     Dosage: UNK
     Dates: start: 20070801
  7. COMBIVIR [Concomitant]
     Indication: HIV INFECTION
     Dosage: UNK
     Dates: start: 20070801
  8. MULTI-VITAMINS [Concomitant]
     Dosage: UNK
     Dates: start: 20070801
  9. VITAMIN C [Concomitant]
     Dosage: UNK
     Dates: start: 20070801
  10. ASPIRIN [Concomitant]
     Dosage: UNK
     Dates: start: 20070801
  11. VITAMIN D [Concomitant]
     Dosage: 400 IU, UNK
  12. MINOXIDIL [Concomitant]

REACTIONS (12)
  - AMNESIA [None]
  - ANTISOCIAL BEHAVIOUR [None]
  - ANXIETY [None]
  - CRYING [None]
  - DEPRESSION [None]
  - DISTURBANCE IN ATTENTION [None]
  - FEAR [None]
  - IMPAIRED DRIVING ABILITY [None]
  - LETHARGY [None]
  - MENTAL IMPAIRMENT [None]
  - MOOD SWINGS [None]
  - PARANOIA [None]
